FAERS Safety Report 25708047 (Version 3)
Quarter: 2025Q3

REPORT INFORMATION
  Report Type: Spontaneous
  Country: JP (occurrence: JP)
  Receive Date: 20250820
  Receipt Date: 20250916
  Transmission Date: 20251020
  Serious: Yes (Hospitalization)
  Sender: GLAXOSMITHKLINE
  Company Number: JP-GSKJP-JP2025JPN106299AA

PATIENT
  Age: 77 Year
  Sex: Female

DRUGS (2)
  1. DAPRODUSTAT [Suspect]
     Active Substance: DAPRODUSTAT
     Indication: Nephrogenic anaemia
  2. LANSOPRAZOLE [Suspect]
     Active Substance: LANSOPRAZOLE

REACTIONS (3)
  - Fracture [Unknown]
  - Faeces discoloured [Unknown]
  - Osteoporosis [Unknown]
